FAERS Safety Report 22826935 (Version 3)
Quarter: 2023Q4

REPORT INFORMATION
  Report Type: Spontaneous
  Country: BR (occurrence: BR)
  Receive Date: 20230816
  Receipt Date: 20231226
  Transmission Date: 20240110
  Serious: Yes (Death, Hospitalization, Other)
  Sender: FDA-Public Use
  Company Number: None

PATIENT
  Age: 67 Year
  Sex: Male
  Weight: 96 kg

DRUGS (7)
  1. KEYTRUDA [Suspect]
     Active Substance: PEMBROLIZUMAB
     Dosage: 190 MILLIGRAM (ALSO REPORTED AS 2 MILLIGRAM PER KILOGRAM (MG/KG)
     Route: 042
     Dates: start: 20230324, end: 2023
  2. DIAZEPAM [Concomitant]
     Active Substance: DIAZEPAM
     Dates: start: 20230323
  3. DIPYRONE [Concomitant]
     Active Substance: DIPYRONE
     Dosage: 500 MG EVERY 4 HOURS
     Dates: start: 20230323
  4. ONDANSETRON [Concomitant]
     Active Substance: ONDANSETRON
     Dosage: 8 MG EVERY 8 HOURS
     Dates: start: 20230323
  5. MORPHINE [Concomitant]
     Active Substance: MORPHINE
     Dosage: 5 MG EVERY 4 HOURS
     Dates: start: 20230323
  6. BISACODYL [Concomitant]
     Active Substance: BISACODYL
     Dates: start: 20230323
  7. GABAPENTIN [Concomitant]
     Active Substance: GABAPENTIN
     Dates: start: 20230323

REACTIONS (3)
  - Blood bilirubin increased [Fatal]
  - Cholestasis [Fatal]
  - Hypothyroidism [Fatal]

NARRATIVE: CASE EVENT DATE: 20230401
